FAERS Safety Report 13712177 (Version 1)
Quarter: 2017Q3

REPORT INFORMATION
  Report Type: Spontaneous
  Country: US (occurrence: US)
  Receive Date: 20170703
  Receipt Date: 20170703
  Transmission Date: 20171127
  Serious: No
  Sender: FDA-Public Use
  Company Number: US-JNJFOC-20170221247

PATIENT
  Sex: Female

DRUGS (2)
  1. STELARA [Suspect]
     Active Substance: USTEKINUMAB
     Indication: PSORIASIS
     Route: 058
  2. NEUTROGENA T/GEL THERAPEUTIC EXTRA STRENGTH [Suspect]
     Active Substance: COAL TAR
     Indication: PSORIASIS
     Route: 061

REACTIONS (1)
  - Drug ineffective [Unknown]
